FAERS Safety Report 5327073-6 (Version None)
Quarter: 2007Q2

REPORT INFORMATION
  Report Type: 
  Country: None (occurrence: None)
  Receive Date: 20070517
  Receipt Date: 20070514
  Transmission Date: 20071010
  Serious: Yes (Other)
  Sender: FDA-Public Use
  Company Number: PHEH2007US04008

PATIENT
  Sex: Female

DRUGS (12)
  1. ZELNORM [Suspect]
     Indication: ABDOMINAL PAIN
     Dosage: 6 MG, BID
     Dates: start: 20070318, end: 20070401
  2. IMDUR [Concomitant]
     Dates: start: 20030101
  3. NORVASC [Concomitant]
  4. ZEBETA [Concomitant]
  5. AVAPRO [Suspect]
     Dosage: 1 TABLET, DAILY
     Route: 048
  6. SYNTHROID [Concomitant]
     Dosage: 125 UG, QD
     Route: 048
  7. NEURONTIN [Concomitant]
     Indication: NEURALGIA
  8. ASMANEX TWISTHALER [Concomitant]
     Indication: ASTHMA
  9. ZANTAC [Concomitant]
     Dosage: 150 MG, BID
     Route: 048
  10. PROTONIX [Concomitant]
     Dosage: 40 MG, QD
     Route: 048
  11. METAMUCIL [Concomitant]
     Dosage: 1 TSP, QD
     Route: 048
  12. SENOKOT /USA/ [Concomitant]
     Dosage: 1 TABLET, DAILY
     Route: 048

REACTIONS (7)
  - BLOOD PRESSURE INCREASED [None]
  - CHEST PAIN [None]
  - DYSPNOEA [None]
  - HEART RATE IRREGULAR [None]
  - HYPERHIDROSIS [None]
  - MYALGIA [None]
  - PALPITATIONS [None]
